FAERS Safety Report 9970001 (Version 2)
Quarter: 2014Q1

REPORT INFORMATION
  Report Type: Spontaneous
  Country: NL (occurrence: None)
  Receive Date: 20140304
  Receipt Date: 20140311
  Transmission Date: 20141002
  Serious: Yes (Other)
  Sender: FDA-Public Use
  Company Number: NL-20140002

PATIENT
  Age: 43 Year
  Sex: Female

DRUGS (4)
  1. DOTAREM (GADOTERIC ACID) [Suspect]
     Indication: ANGIOGRAM
     Route: 041
     Dates: start: 20140210, end: 20140210
  2. EXFORGE HCT (AMLODIPINE BESILATE, HYDROCHLOROTHIAZIDE, VALSARTAN) (AMLODIPINE BESILATE, HYDROCHLOROTHIAZIDE, VALSARTAN) [Concomitant]
  3. METOPROLOL (METOPROLOL) (METOPROLOL) [Concomitant]
  4. SPIRONOLACTON (SPIRONOLACTONE) (SPIRONOLACTONE) [Concomitant]

REACTIONS (5)
  - Peripheral ischaemia [None]
  - Peripheral coldness [None]
  - Raynaud^s phenomenon [None]
  - Hypoperfusion [None]
  - Cerebral artery occlusion [None]
